FAERS Safety Report 10761831 (Version 3)
Quarter: 2015Q1

REPORT INFORMATION
  Report Type: Spontaneous
  Country: DE (occurrence: DE)
  Receive Date: 20150204
  Receipt Date: 20150326
  Transmission Date: 20150721
  Serious: Yes (Other)
  Sender: FDA-Public Use
  Company Number: DE-PFIZER INC-2015014429

PATIENT
  Age: 79 Year
  Sex: Male
  Weight: 79 kg

DRUGS (12)
  1. LIORAN [Concomitant]
     Dosage: 2 DF, UNK
  2. INSPRA [Suspect]
     Active Substance: EPLERENONE
     Indication: CARDIAC FAILURE
     Dosage: 25 MG, UNK
     Dates: start: 201012
  3. ATORVASTATIN [Concomitant]
     Active Substance: ATORVASTATIN
     Indication: BLOOD CHOLESTEROL INCREASED
     Dosage: 10 MG, 1X/DAY
     Dates: start: 2010
  4. ALFUZOSIN [Concomitant]
     Active Substance: ALFUZOSIN
     Dosage: 10 MG, UNK
     Dates: start: 2009
  5. MAGNESIUM [Concomitant]
     Active Substance: MAGNESIUM
     Dosage: 375 MG, UNK
     Dates: start: 2010
  6. ASPIRIN. [Concomitant]
     Active Substance: ASPIRIN
     Dosage: 100 MG, UNK
     Dates: start: 2010
  7. CRATAEGUTT [Concomitant]
     Indication: CARDIAC FAILURE
     Dosage: 420 MG, 2X/DAY
     Dates: start: 2012
  8. ANTISTAX [Concomitant]
     Active Substance: VITIS VINIFERA FLOWERING TOP
     Dosage: 360 MG, UNK
     Dates: start: 2011
  9. TORASEMIDE [Concomitant]
     Active Substance: TORSEMIDE
     Dosage: 10 MG,
     Dates: start: 2001
  10. ZINC [Concomitant]
     Active Substance: ZINC\ZINC CHLORIDE
     Dosage: 25 MG, UNK
     Dates: start: 2011
  11. SYSTANE ULTRA [Concomitant]
     Active Substance: POLYETHYLENE GLYCOL 400\PROPYLENE GLYCOL
     Indication: DRY EYE
     Dosage: UNK, AS NEEDED
     Dates: start: 1992
  12. RAMIPRIL. [Concomitant]
     Active Substance: RAMIPRIL
     Dosage: 5 MG, UNK
     Dates: start: 2010

REACTIONS (1)
  - Prostate cancer [Unknown]

NARRATIVE: CASE EVENT DATE: 20140206
